FAERS Safety Report 4409523-2 (Version None)
Quarter: 2004Q3

REPORT INFORMATION
  Report Type: 
  Country: None (occurrence: None)
  Receive Date: 20040723
  Receipt Date: 20040712
  Transmission Date: 20050211
  Serious: Yes (Other)
  Sender: FDA-Public Use
  Company Number: US-JNJFOC-20040503970

PATIENT
  Age: 66 Year
  Sex: Female
  Weight: 56.6996 kg

DRUGS (5)
  1. REMICADE [Suspect]
     Indication: RHEUMATOID ARTHRITIS
     Dosage: INTRAVENOUS
     Route: 042
     Dates: start: 19970101, end: 20040511
  2. METHOTREXATE SODIUM [Concomitant]
  3. CELEBREX [Concomitant]
  4. PLAVIX [Concomitant]
  5. FOLIC ACID [Concomitant]

REACTIONS (2)
  - ARTHRALGIA [None]
  - PARKINSON'S DISEASE [None]
